FAERS Safety Report 4881008-9 (Version None)
Quarter: 2005Q4

REPORT INFORMATION
  Report Type: 
  Country: None (occurrence: None)
  Receive Date: 20051223
  Receipt Date: 20050929
  Transmission Date: 20060501
  Serious: Yes (Hospitalization)
  Sender: FDA-Public Use
  Company Number: 05P-163-0312419

PATIENT
  Age: 69 Year
  Sex: Female
  Weight: 56.246 kg

DRUGS (6)
  1. HUMIRA [Suspect]
     Indication: RHEUMATOID ARTHRITIS
     Dosage: 40 MG, 1 IN 2 WK, SUBCUTANEOUS
     Route: 058
     Dates: start: 20050501, end: 20050801
  2. HUMIRA [Suspect]
     Indication: RHEUMATOID ARTHRITIS
     Dosage: 40 MG, 1 IN 2 WK, SUBCUTANEOUS
     Route: 058
     Dates: start: 20050901
  3. FOSINOPRIL SODIUM [Concomitant]
  4. METOPROLOL TARTRATE [Concomitant]
  5. SODIUM BICARBONATE [Concomitant]
  6. PREDNISONE [Concomitant]

REACTIONS (1)
  - CELLULITIS [None]
